FAERS Safety Report 8156941-5 (Version None)
Quarter: 2012Q1

REPORT INFORMATION
  Report Type: 
  Country: None (occurrence: None)
  Receive Date: 20120103
  Receipt Date: 20111004
  Transmission Date: 20120608
  Serious: No
  Sender: FDA-Public Use
  Company Number: AE-2011-002030

PATIENT
  Age: 31 Year
  Sex: Male
  Weight: 70.3075 kg

DRUGS (3)
  1. RIBAVIRIN [Concomitant]
  2. INCIVEK [Suspect]
     Dosage: 2250 MG (750 MG,1 IN 8 HR) , ORAL
     Route: 048
     Dates: start: 20110827
  3. PEGINTERFERON(PEGINTERFERON ALFA-2A) [Concomitant]

REACTIONS (3)
  - COUGH [None]
  - RESPIRATORY DISORDER [None]
  - DRY THROAT [None]
